FAERS Safety Report 5939956-4 (Version None)
Quarter: 2008Q4

REPORT INFORMATION
  Report Type: 
  Country: None (occurrence: None)
  Receive Date: 20081031
  Receipt Date: 20081031
  Transmission Date: 20090506
  Serious: Yes (Hospitalization)
  Sender: FDA-Public Use
  Company Number: None

PATIENT
  Age: 67 Year

DRUGS (17)
  1. OXALIPLATIN [Suspect]
     Indication: HEAD AND NECK CANCER
     Dosage: 130 MG/M2 IV Q 21 D
     Route: 042
     Dates: start: 20081022
  2. DOCETAXEL [Suspect]
     Indication: HEAD AND NECK CANCER
     Dosage: 60 MG/M2 IV Q 21 D
     Route: 042
     Dates: start: 20081022
  3. ALBUTEROL [Concomitant]
  4. ALPRAZOLAM [Concomitant]
  5. AL/MGOH [Concomitant]
  6. LIDOCAINE MOUTHWASH [Concomitant]
  7. CIPROFLOXACIN [Concomitant]
  8. DICYCLOMINE HCL [Concomitant]
  9. DOCUSATE NA [Concomitant]
  10. NEUPOGEN [Concomitant]
  11. FLUCONAZOLE [Concomitant]
  12. LOPERAMIDE HCL [Concomitant]
  13. MOMOTASONE FUROATE [Concomitant]
  14. OMEPRAZOLE [Concomitant]
  15. ONDANSETRON HYDROCHLORIDE [Concomitant]
  16. OXYCODONE HCL [Concomitant]
  17. PILOCARPINE [Concomitant]

REACTIONS (10)
  - ABDOMINAL PAIN [None]
  - ABDOMINAL PAIN UPPER [None]
  - CONSTIPATION [None]
  - DIARRHOEA [None]
  - FAECALOMA [None]
  - MUCOSAL INFLAMMATION [None]
  - MUCOUS MEMBRANE DISORDER [None]
  - NAUSEA [None]
  - STOMATITIS [None]
  - VOMITING [None]
